FAERS Safety Report 5895016-2 (Version None)
Quarter: 2008Q3

REPORT INFORMATION
  Report Type: 
  Country: None (occurrence: None)
  Receive Date: 20080924
  Receipt Date: 20080916
  Transmission Date: 20090109
  Serious: Yes (Hospitalization)
  Sender: FDA-Public Use
  Company Number: FR-PFIZER INC-2007074047

PATIENT
  Sex: Male

DRUGS (17)
  1. TAHOR [Suspect]
     Dosage: DAILY DOSE:40MG
     Route: 048
  2. PREVISCAN [Suspect]
     Dosage: DAILY DOSE:10MG
     Route: 048
     Dates: start: 20070201, end: 20070724
  3. CIPROFLOXACIN HYDROCHLORIDE [Suspect]
     Dosage: DAILY DOSE:1000MG
     Route: 048
     Dates: start: 20070724, end: 20070728
  4. ROCEPHIN [Suspect]
     Indication: PROPHYLAXIS
     Dosage: DAILY DOSE:1GRAM
     Route: 042
     Dates: start: 20070722, end: 20070730
  5. ASPIRIN [Suspect]
     Dosage: DAILY DOSE:75MG
     Route: 048
  6. MOPRAL [Suspect]
     Dosage: DAILY DOSE:20MG
     Route: 048
     Dates: start: 20050201
  7. AMIODARONE HCL [Concomitant]
     Route: 048
  8. ALLOPURINOL [Concomitant]
     Dosage: DAILY DOSE:200MG
     Route: 048
  9. LEVOTHYROX [Concomitant]
     Indication: HYPOTHYROIDISM
     Dosage: DAILY DOSE:125MG
     Route: 048
     Dates: start: 20070128
  10. BURINEX [Concomitant]
  11. CELLCEPT [Concomitant]
  12. HYPERIUM [Concomitant]
  13. METFORMIN HCL [Concomitant]
  14. MOLSIDOMINE [Concomitant]
  15. MOVICOL [Concomitant]
  16. NEORAL [Concomitant]
  17. LANTUS [Concomitant]

REACTIONS (2)
  - ANAEMIA [None]
  - PERITONEAL HAEMORRHAGE [None]
